FAERS Safety Report 7048131-4 (Version None)
Quarter: 2010Q4

REPORT INFORMATION
  Report Type: 
  Country: None (occurrence: None)
  Receive Date: 20101015
  Receipt Date: 20101008
  Transmission Date: 20110411
  Serious: Yes (Other)
  Sender: FDA-Public Use
  Company Number: CHPA2010US15905

PATIENT
  Age: 53 Year
  Sex: Female
  Weight: 67.12 kg

DRUGS (1)
  1. VOLTAREN [Suspect]
     Dosage: UNK, UNK
     Route: 061
     Dates: start: 20100721, end: 20100809

REACTIONS (2)
  - BLISTER [None]
  - WOUND [None]
